FAERS Safety Report 24201263 (Version 1)
Quarter: 2024Q3

REPORT INFORMATION
  Report Type: Spontaneous
  Country: US (occurrence: None)
  Receive Date: 20240810
  Receipt Date: 20240810
  Transmission Date: 20241016
  Serious: Yes (Hospitalization)
  Sender: Public
  Company Number: None

PATIENT
  Sex: Male
  Weight: 85.7 kg

DRUGS (2)
  1. CARBOPLATIN [Suspect]
     Active Substance: CARBOPLATIN
  2. DOCETAXEL (TACOTERE) [Concomitant]

REACTIONS (6)
  - Hypoxia [None]
  - Asthenia [None]
  - Blood sodium decreased [None]
  - Neutrophil count decreased [None]
  - Chest X-ray abnormal [None]
  - Gallbladder enlargement [None]

NARRATIVE: CASE EVENT DATE: 20240731
